FAERS Safety Report 11528253 (Version 1)
Quarter: 2015Q3

REPORT INFORMATION
  Report Type: Spontaneous
  Country: US (occurrence: US)
  Receive Date: 20150921
  Receipt Date: 20150921
  Transmission Date: 20151125
  Serious: Yes (Other)
  Sender: FDA-Public Use
  Company Number: US-ACTELION-A-US2015-111015

PATIENT
  Age: 33 Year
  Sex: Female

DRUGS (13)
  1. MULTIVITAMIN [Concomitant]
     Active Substance: VITAMINS
  2. ADCIRCA [Concomitant]
     Active Substance: TADALAFIL
     Dosage: 40 MG, QD
  3. CYMBALTA [Concomitant]
     Active Substance: DULOXETINE HYDROCHLORIDE
     Dosage: 30 MG, QD
  4. OXYGEN. [Concomitant]
     Active Substance: OXYGEN
     Indication: HYPOXIA
  5. POTASSIUM CHLORIDE. [Concomitant]
     Active Substance: POTASSIUM CHLORIDE
     Dosage: 10 MEQ, QD
  6. ALBUTEROL. [Concomitant]
     Active Substance: ALBUTEROL
     Dosage: UNK, PRN
  7. VENTAVIS [Suspect]
     Active Substance: ILOPROST
     Indication: PULMONARY ARTERIAL HYPERTENSION
     Dosage: UNK, Q6HRS
     Route: 055
  8. LASIX [Concomitant]
     Active Substance: FUROSEMIDE
     Indication: POLYURIA
     Dosage: 20 MG, QD
  9. FERROUS SULFATE [Concomitant]
     Active Substance: FERROUS SULFATE\FERROUS SULFATE, DRIED
     Dosage: 325 MG, QD
  10. CAMILA [Concomitant]
     Active Substance: NORETHINDRONE
     Dosage: 0.35 MG, QD
  11. TRACLEER [Suspect]
     Active Substance: BOSENTAN
     Indication: PULMONARY ARTERIAL HYPERTENSION
     Dosage: UNK
     Route: 048
  12. SYMBICORT [Concomitant]
     Active Substance: BUDESONIDE\FORMOTEROL FUMARATE DIHYDRATE
     Dosage: 2 PUFF, BID
  13. VENTAVIS [Suspect]
     Active Substance: ILOPROST
     Dosage: UNK, Q4HRS
     Route: 055

REACTIONS (10)
  - Cardiac failure congestive [Recovering/Resolving]
  - Hypoxia [Recovering/Resolving]
  - Weight increased [Unknown]
  - Dyspnoea [Recovering/Resolving]
  - Hepatic congestion [Recovering/Resolving]
  - Aspartate aminotransferase increased [Recovering/Resolving]
  - Cor pulmonale [Recovering/Resolving]
  - Fluid overload [Recovering/Resolving]
  - Fatigue [Recovering/Resolving]
  - Alanine aminotransferase increased [Recovering/Resolving]

NARRATIVE: CASE EVENT DATE: 201406
